FAERS Safety Report 24256237 (Version 4)
Quarter: 2025Q3

REPORT INFORMATION
  Report Type: Report from Study
  Country: EU (occurrence: EU)
  Receive Date: 20240828
  Receipt Date: 20250925
  Transmission Date: 20251021
  Serious: Yes (Hospitalization)
  Sender: ABBVIE
  Company Number: EU-ABBVIE-5881304

PATIENT
  Age: 66 Year
  Sex: Male
  Weight: 105 kg

DRUGS (2)
  1. CARBIDOPA\LEVODOPA [Suspect]
     Active Substance: CARBIDOPA\LEVODOPA
     Indication: Parkinson^s disease
     Route: 050
     Dates: start: 20190813, end: 2024
  2. CARBIDOPA\LEVODOPA [Suspect]
     Active Substance: CARBIDOPA\LEVODOPA
     Route: 050
     Dates: start: 2024

REACTIONS (9)
  - Bacterial infection [Not Recovered/Not Resolved]
  - Stoma site inflammation [Not Recovered/Not Resolved]
  - Clumsiness [Not Recovered/Not Resolved]
  - Stoma site infection [Unknown]
  - Restlessness [Not Recovered/Not Resolved]
  - Stoma site pain [Not Recovered/Not Resolved]
  - Emotional distress [Not Recovered/Not Resolved]
  - Stoma site discharge [Not Recovered/Not Resolved]
  - Stoma site erythema [Not Recovered/Not Resolved]

NARRATIVE: CASE EVENT DATE: 20240101
